FAERS Safety Report 12073956 (Version 2)
Quarter: 2017Q1

REPORT INFORMATION
  Report Type: Spontaneous
  Country: US (occurrence: US)
  Receive Date: 20160212
  Receipt Date: 20170330
  Transmission Date: 20170428
  Serious: No
  Sender: FDA-Public Use
  Company Number: US-009507513-1602USA005941

PATIENT
  Sex: Female

DRUGS (11)
  1. LEVEMIR [Concomitant]
     Active Substance: INSULIN DETEMIR
  2. JANUVIA [Suspect]
     Active Substance: SITAGLIPTIN PHOSPHATE
     Indication: DIABETES MELLITUS
     Dosage: 100 MG, QD
     Route: 048
     Dates: start: 2014
  3. INSULIN [Concomitant]
     Active Substance: INSULIN NOS
  4. METOPROLOL. [Concomitant]
     Active Substance: METOPROLOL
  5. AMIODARONE [Concomitant]
     Active Substance: AMIODARONE
  6. GLUCOTROL XL [Concomitant]
     Active Substance: GLIPIZIDE
  7. JANUVIA [Suspect]
     Active Substance: SITAGLIPTIN PHOSPHATE
     Indication: DIABETES MELLITUS
     Dosage: UNK
     Route: 048
  8. PLENDIL [Concomitant]
     Active Substance: FELODIPINE
  9. DIOVAN [Concomitant]
     Active Substance: VALSARTAN
  10. DIGOXIN. [Concomitant]
     Active Substance: DIGOXIN
  11. TRICOR [Concomitant]
     Active Substance: FENOFIBRATE

REACTIONS (10)
  - Inappropriate schedule of drug administration [Unknown]
  - Abdominal pain upper [Unknown]
  - Drug prescribing error [Unknown]
  - Blood glucose increased [Not Recovered/Not Resolved]
  - Adverse event [Not Recovered/Not Resolved]
  - Drug dose omission [Unknown]
  - Feeling abnormal [Unknown]
  - Dysphagia [Not Recovered/Not Resolved]
  - Poor quality sleep [Not Recovered/Not Resolved]
  - Malaise [Unknown]
